FAERS Safety Report 6256346-8 (Version None)
Quarter: 2009Q2

REPORT INFORMATION
  Report Type: 
  Country: None (occurrence: None)
  Receive Date: 20090630
  Receipt Date: 20090630
  Transmission Date: 20091009
  Serious: Yes (Other)
  Sender: FDA-Public Use
  Company Number: None

PATIENT
  Age: 35 Year
  Sex: Male
  Weight: 113.3993 kg

DRUGS (5)
  1. GABAPENTIN [Suspect]
     Indication: BACK PAIN
     Dosage: 900MG PER DAY PO
     Route: 048
     Dates: start: 20090309, end: 20090623
  2. GABAPENTIN [Suspect]
     Indication: INTERVERTEBRAL DISC PROTRUSION
     Dosage: 900MG PER DAY PO
     Route: 048
     Dates: start: 20090309, end: 20090623
  3. AVELOX [Suspect]
     Indication: SINUSITIS
     Dosage: 400MG PER DAY PO
     Route: 048
     Dates: start: 20090602, end: 20090615
  4. MELOXCAM [Concomitant]
  5. VALIUM [Concomitant]

REACTIONS (4)
  - ANXIETY [None]
  - MUSCLE SPASMS [None]
  - MUSCLE TWITCHING [None]
  - PARAESTHESIA [None]
